FAERS Safety Report 5236513-2 (Version None)
Quarter: 2007Q1

REPORT INFORMATION
  Report Type: 
  Country: None (occurrence: None)
  Receive Date: 20070212
  Receipt Date: 20070208
  Transmission Date: 20070707
  Serious: Yes (Other)
  Sender: FDA-Public Use
  Company Number: US-ALLERGAN-0701386US

PATIENT
  Sex: Male

DRUGS (1)
  1. BOTOX COSMETIC [Suspect]
     Indication: DRUG EXPOSURE DURING PREGNANCY
     Dosage: 20 UNITS, SINGLE
     Route: 064
     Dates: start: 20060419, end: 20060419

REACTIONS (1)
  - PREMATURE BABY [None]
